FAERS Safety Report 25719934 (Version 1)
Quarter: 2025Q3

REPORT INFORMATION
  Report Type: Spontaneous
  Country: GB (occurrence: GB)
  Receive Date: 20250825
  Receipt Date: 20250825
  Transmission Date: 20251021
  Serious: Yes (Other)
  Sender: TEVA
  Company Number: GB-MHRA-TPP22636838C723501YC1755601625595

PATIENT
  Age: 75 Year
  Sex: Female
  Weight: 58 kg

DRUGS (7)
  1. TRIMETHOPRIM [Suspect]
     Active Substance: TRIMETHOPRIM
     Indication: Ill-defined disorder
     Dosage: TAKE TWO TABLETS TWICE A DAY FOR 3 DAYS
     Route: 065
     Dates: start: 20250620, end: 20250623
  2. FAMOTIDINE [Concomitant]
     Active Substance: FAMOTIDINE
     Indication: Ill-defined disorder
     Dates: start: 20230922
  3. CEPHALEXIN [Concomitant]
     Active Substance: CEPHALEXIN
     Indication: Ill-defined disorder
     Dosage: DAILY DOSE: 2 DOSAGE FORM, FOR 7 DAYS
     Dates: start: 20250819
  4. BISOPROLOL [Concomitant]
     Active Substance: BISOPROLOL
     Indication: Ill-defined disorder
     Dates: start: 20240306
  5. EZETIMIBE [Concomitant]
     Active Substance: EZETIMIBE
     Indication: Ill-defined disorder
     Dates: start: 20240717
  6. RAMIPRIL [Concomitant]
     Active Substance: RAMIPRIL
     Indication: Ill-defined disorder
     Dates: start: 20250414
  7. OMEPRAZOLE [Concomitant]
     Active Substance: OMEPRAZOLE
     Indication: Ill-defined disorder
     Dosage: THEN REDUCE ...
     Dates: start: 20240429

REACTIONS (2)
  - Swollen tongue [Recovered/Resolved]
  - Urticaria [Recovered/Resolved]
